FAERS Safety Report 12657648 (Version 1)
Quarter: 2016Q3

REPORT INFORMATION
  Report Type: Spontaneous
  Country: CN (occurrence: CN)
  Receive Date: 20160816
  Receipt Date: 20160816
  Transmission Date: 20161109
  Serious: Yes (Other)
  Sender: FDA-Public Use
  Company Number: CN-ABBVIE-16P-035-1701968-00

PATIENT
  Age: 23 Year
  Sex: Female

DRUGS (1)
  1. DEPAKINE CHRONO [Suspect]
     Active Substance: VALPROATE SODIUM
     Indication: EPILEPSY
     Dosage: TABLET, EXTENDED RELEASE
     Route: 048
     Dates: start: 2013

REACTIONS (9)
  - Musculoskeletal stiffness [Unknown]
  - Seizure [Unknown]
  - Epilepsy [Unknown]
  - Foaming at mouth [Unknown]
  - Drug ineffective [Unknown]
  - Exposure during pregnancy [Unknown]
  - Eye movement disorder [Unknown]
  - Self-medication [Unknown]
  - Drug withdrawal convulsions [Unknown]
